FAERS Safety Report 4735148-5 (Version None)
Quarter: 2005Q3

REPORT INFORMATION
  Report Type: 
  Country: None (occurrence: None)
  Receive Date: 20050804
  Receipt Date: 20050714
  Transmission Date: 20060218
  Serious: Yes (Hospitalization)
  Sender: FDA-Public Use
  Company Number: USA0507102832

PATIENT
  Sex: Female

DRUGS (3)
  1. CYMBALTA [Suspect]
     Indication: DEPRESSION
     Dosage: 80 MG DAY
     Dates: start: 20050419
  2. ATIVAN [Concomitant]
  3. . [Concomitant]

REACTIONS (2)
  - AGITATION [None]
  - URINARY TRACT INFECTION [None]
